FAERS Safety Report 25533041 (Version 1)
Quarter: 2025Q3

REPORT INFORMATION
  Report Type: Spontaneous
  Country: US (occurrence: US)
  Receive Date: 20250709
  Receipt Date: 20250709
  Transmission Date: 20251021
  Serious: Yes (Death)
  Sender: AMGEN
  Company Number: US-AMGEN-USASP2025129847

PATIENT
  Age: 71 Year
  Sex: Male

DRUGS (2)
  1. PREDNISONE [Suspect]
     Active Substance: PREDNISONE
     Indication: Product used for unknown indication
     Route: 065
  2. RUXOLITINIB [Concomitant]
     Active Substance: RUXOLITINIB
     Indication: Graft versus host disease
     Dosage: 10-20 MILLIGRAM, BID (LENGTH OF USE: 6 MONTHS)
     Route: 048

REACTIONS (1)
  - Death [Fatal]
